FAERS Safety Report 10166061 (Version 1)
Quarter: 2014Q2

REPORT INFORMATION
  Report Type: Spontaneous
  Country: US (occurrence: US)
  Receive Date: 20140512
  Receipt Date: 20140512
  Transmission Date: 20141212
  Serious: No
  Sender: FDA-Public Use
  Company Number: US-009507513-1405USA004068

PATIENT
  Age: 25 Year
  Sex: Female
  Weight: 78.5 kg

DRUGS (1)
  1. NEXPLANON [Suspect]
     Indication: CONTRACEPTION
     Dosage: 1 ROD FOR 3 YEARS SUBDERMALLY IN LEFT ARM
     Route: 059
     Dates: start: 20131104

REACTIONS (7)
  - Abdominal distension [Unknown]
  - Metrorrhagia [Unknown]
  - Weight increased [Unknown]
  - Menstrual disorder [Unknown]
  - Arthralgia [Unknown]
  - Headache [Unknown]
  - Back pain [Unknown]
